FAERS Safety Report 4565907-3 (Version None)
Quarter: 2005Q1

REPORT INFORMATION
  Report Type: 
  Country: None (occurrence: None)
  Receive Date: 20050128
  Receipt Date: 20050121
  Transmission Date: 20050727
  Serious: Yes (Other)
  Sender: FDA-Public Use
  Company Number: 200410481BCA

PATIENT
  Age: 79 Year
  Sex: Male

DRUGS (11)
  1. ASPIRIN [Suspect]
     Dosage: 81 MG, TOTAL DAILY, ORAL
     Route: 048
     Dates: start: 20030120
  2. HEPARIN [Suspect]
     Dosage: 750 U, TOTAL DAILY, INTRAVENOUS
     Route: 042
     Dates: start: 20030120, end: 20030123
  3. INTEGRILIN [Suspect]
     Dosage: INTRAVENOUS
     Route: 042
  4. PLAVIX [Suspect]
     Dosage: ORAL
     Route: 048
  5. GRAVOL TAB [Concomitant]
  6. LIPITOR [Concomitant]
  7. LITHIUM [Concomitant]
  8. MONOCOR [Concomitant]
  9. NITRO-DUR [Concomitant]
  10. RAMIPRIL [Concomitant]
  11. VALIUM [Concomitant]

REACTIONS (5)
  - ANAEMIA [None]
  - BLOOD URINE PRESENT [None]
  - CORONARY ARTERY DISEASE [None]
  - DRUG INTERACTION [None]
  - THROMBOCYTOPENIA [None]
